FAERS Safety Report 10060607 (Version 1)
Quarter: 2014Q2

REPORT INFORMATION
  Report Type: Spontaneous
  Country: US (occurrence: US)
  Receive Date: 20140404
  Receipt Date: 20140404
  Transmission Date: 20141212
  Serious: Yes (Other)
  Sender: FDA-Public Use
  Company Number: US-ELI_LILLY_AND_COMPANY-US201403010688

PATIENT
  Age: 55 Year
  Sex: Female

DRUGS (4)
  1. EFFIENT [Suspect]
     Indication: PERCUTANEOUS CORONARY INTERVENTION
     Dosage: 60 MG, SINGLE
  2. EFFIENT [Suspect]
     Dosage: UNK
  3. ANGIOMAX [Concomitant]
     Indication: PERCUTANEOUS CORONARY INTERVENTION
  4. ASA [Concomitant]
     Indication: PERCUTANEOUS CORONARY INTERVENTION

REACTIONS (2)
  - Skin necrosis [Unknown]
  - Vessel puncture site haematoma [Unknown]
